FAERS Safety Report 10521747 (Version 1)
Quarter: 2014Q4

REPORT INFORMATION
  Report Type: Spontaneous
  Country: DE (occurrence: DE)
  Receive Date: 20141016
  Receipt Date: 20141016
  Transmission Date: 20150528
  Serious: Yes (Other)
  Sender: FDA-Public Use
  Company Number: PHHY2014DE131697

PATIENT
  Age: 75 Year
  Sex: Male

DRUGS (3)
  1. 5 FLUORO URACIL [Concomitant]
     Active Substance: FLUOROURACIL
     Indication: RECTAL ADENOCARCINOMA
     Dosage: 2400 MG/M2, FOR 46 H
     Route: 041
  2. LEUCOVORIN [Concomitant]
     Active Substance: LEUCOVORIN
     Indication: RECTAL ADENOCARCINOMA
     Dosage: 400 MG/M2, UNK
     Route: 065
  3. OXALIPLATIN. [Suspect]
     Active Substance: OXALIPLATIN
     Indication: RECTAL ADENOCARCINOMA
     Dosage: 80 MG/M2, UNK
     Route: 042

REACTIONS (17)
  - Skin ulcer [Recovering/Resolving]
  - Glomerulonephritis proliferative [Recovering/Resolving]
  - Acute kidney injury [Recovering/Resolving]
  - Pyrexia [Recovered/Resolved]
  - Petechiae [Recovered/Resolved]
  - Palpable purpura [Recovering/Resolving]
  - Skin lesion [Recovering/Resolving]
  - Proteinuria [Recovering/Resolving]
  - Leukocytosis [Recovering/Resolving]
  - Hypersensitivity vasculitis [Recovered/Resolved]
  - Haemorrhage [Recovering/Resolving]
  - Hypochromic anaemia [Recovering/Resolving]
  - C-reactive protein increased [Recovering/Resolving]
  - Oedema peripheral [Recovering/Resolving]
  - Haematuria [Recovering/Resolving]
  - Arthralgia [Recovered/Resolved]
  - Toxicity to various agents [Unknown]
